FAERS Safety Report 19498347 (Version 1)
Quarter: 2021Q3

REPORT INFORMATION
  Report Type: Spontaneous
  Country: US (occurrence: US)
  Receive Date: 20210706
  Receipt Date: 20210706
  Transmission Date: 20211014
  Serious: No
  Sender: FDA-Public Use
  Company Number: US-ORGANON-O2106USA002447

PATIENT
  Age: 32 Year
  Sex: Female
  Weight: 95.24 kg

DRUGS (1)
  1. NEXPLANON [Suspect]
     Active Substance: ETONOGESTREL
     Dosage: 68 MG ROD
     Route: 059
     Dates: end: 20210623

REACTIONS (2)
  - Device kink [Recovered/Resolved]
  - No adverse event [Unknown]

NARRATIVE: CASE EVENT DATE: 20210623
